FAERS Safety Report 6622270-1 (Version None)
Quarter: 2010Q1

REPORT INFORMATION
  Report Type: 
  Country: None (occurrence: None)
  Receive Date: 20100305
  Receipt Date: 20100218
  Transmission Date: 20100710
  Serious: Yes (Hospitalization)
  Sender: FDA-Public Use
  Company Number: AMAG201000119

PATIENT
  Age: 91 Year
  Sex: Male
  Weight: 84.8 kg

DRUGS (2)
  1. FERAHEME [Suspect]
     Indication: IRON DEFICIENCY ANAEMIA
     Dosage: 255 MG, SINGLE, INTRAVENOUS
     Route: 042
     Dates: start: 20100201, end: 20100201
  2. FERAHEME [Suspect]
     Indication: RENAL FAILURE CHRONIC
     Dosage: 255 MG, SINGLE, INTRAVENOUS
     Route: 042
     Dates: start: 20100201, end: 20100201

REACTIONS (3)
  - DRUG HYPERSENSITIVITY [None]
  - HYPOTENSION [None]
  - SYNCOPE [None]
